FAERS Safety Report 10246588 (Version 3)
Quarter: 2014Q3

REPORT INFORMATION
  Report Type: Spontaneous
  Country: IT (occurrence: None)
  Receive Date: 20140617
  Receipt Date: 20140807
  Transmission Date: 20150326
  Serious: Yes (Hospitalization)
  Sender: FDA-Public Use
  Company Number: AUR-APL-2014-06213

PATIENT
  Age: 56 Year
  Sex: Female

DRUGS (1)
  1. METFORMIN (METFORMIN) UNKNOWN, UNKNOWN [Suspect]
     Active Substance: METFORMIN HYDROCHLORIDE
     Indication: TYPE 2 DIABETES MELLITUS
     Dosage: 1 DF TOTAL, ORAL
     Route: 048
     Dates: start: 20090525, end: 20140525

REACTIONS (8)
  - Metabolic acidosis [None]
  - Anuria [None]
  - Dialysis [None]
  - Coma [None]
  - Vomiting [None]
  - Blood bicarbonate decreased [None]
  - Diabetic ketoacidosis [None]
  - Diarrhoea [None]

NARRATIVE: CASE EVENT DATE: 20140523
